FAERS Safety Report 7720089-1 (Version None)
Quarter: 2011Q3

REPORT INFORMATION
  Report Type: 
  Country: None (occurrence: None)
  Receive Date: 20110831
  Receipt Date: 20110817
  Transmission Date: 20111222
  Serious: Yes (Death, Hospitalization, Other)
  Sender: FDA-Public Use
  Company Number: AU-AMGEN-AUSCT2011033325

PATIENT
  Age: 56 Year
  Sex: Male

DRUGS (6)
  1. FLUOROURACIL [Concomitant]
     Dosage: 250 MG, QD
     Dates: start: 20110609, end: 20110622
  2. CISPLATIN [Concomitant]
     Dosage: 97 MG, UNK
     Dates: start: 20110609
  3. PANITUMUMAB [Suspect]
     Indication: OESOPHAGEAL CARCINOMA
     Dosage: 460 MG, Q3WK
     Dates: start: 20110609, end: 20110609
  4. LOPERAMIDE HCL [Concomitant]
     Dosage: 2 MG, UNK
     Route: 048
     Dates: start: 20110611, end: 20110617
  5. NYSTATIN [Concomitant]
     Dosage: 500000 UNIT, UNK
     Route: 048
     Dates: start: 20110615, end: 20110617
  6. DOCETAXEL [Concomitant]
     Dosage: 48 MG, UNK
     Dates: start: 20110609

REACTIONS (1)
  - SMALL INTESTINAL OBSTRUCTION [None]
